FAERS Safety Report 9813200 (Version 2)
Quarter: 2014Q1

REPORT INFORMATION
  Report Type: Report from Study
  Country: US (occurrence: US)
  Receive Date: 20140113
  Receipt Date: 20140116
  Transmission Date: 20141002
  Serious: Yes (Hospitalization)
  Sender: FDA-Public Use
  Company Number: US-JNJFOC-20140102978

PATIENT
  Age: 18 Year
  Sex: Female
  Weight: 83.9 kg

DRUGS (5)
  1. REMICADE [Suspect]
     Indication: CROHN^S DISEASE
     Route: 042
     Dates: start: 20090914, end: 20110401
  2. HUMIRA [Suspect]
     Indication: CROHN^S DISEASE
     Route: 058
     Dates: start: 20130712
  3. HUMIRA [Suspect]
     Indication: CROHN^S DISEASE
     Route: 058
     Dates: start: 20110519
  4. FERROUS FUMARATE [Concomitant]
     Route: 065
  5. CALCIUM ASCORBATE [Concomitant]
     Route: 065

REACTIONS (2)
  - Crohn^s disease [Recovered/Resolved]
  - Clostridium difficile infection [Recovered/Resolved]
